FAERS Safety Report 10640663 (Version 1)
Quarter: 2014Q4

REPORT INFORMATION
  Report Type: Spontaneous
  Country: US (occurrence: None)
  Receive Date: 20141208
  Receipt Date: 20141208
  Transmission Date: 20150529
  Serious: No
  Sender: FDA-Public Use
  Company Number: None

PATIENT
  Age: 68 Year
  Sex: Male
  Weight: 75.2 kg

DRUGS (3)
  1. BORTEZOMIB [Suspect]
     Active Substance: BORTEZOMIB
     Dates: start: 20141203, end: 20141203
  2. RITUXIMAB [Suspect]
     Active Substance: RITUXIMAB
     Dates: start: 20141203, end: 20141203
  3. BENDAMUSTINE HYDROCHLORIDE [Suspect]
     Active Substance: BENDAMUSTINE HYDROCHLORIDE
     Dates: start: 20141203, end: 20141203

REACTIONS (6)
  - Splenic rupture [None]
  - Aspartate aminotransferase increased [None]
  - Tumour lysis syndrome [None]
  - Epistaxis [None]
  - Thrombocytopenia [None]
  - Blood uric acid increased [None]

NARRATIVE: CASE EVENT DATE: 20141203
